FAERS Safety Report 21464252 (Version 1)
Quarter: 2022Q4

REPORT INFORMATION
  Report Type: Spontaneous
  Country: ES (occurrence: ES)
  Receive Date: 20221017
  Receipt Date: 20221017
  Transmission Date: 20230113
  Serious: Yes (Hospitalization)
  Sender: FDA-Public Use
  Company Number: None

PATIENT
  Age: 84 Year
  Weight: 42 kg

DRUGS (1)
  1. COSENTYX [Suspect]
     Active Substance: SECUKINUMAB
     Indication: Psoriasis
     Dosage: 300 MG, Q4W (300 MG CADA 4 SEMANAS)
     Route: 058
     Dates: start: 20160428, end: 20220526

REACTIONS (1)
  - Diverticulum intestinal [Recovered/Resolved with Sequelae]

NARRATIVE: CASE EVENT DATE: 20220422
